FAERS Safety Report 22951736 (Version 2)
Quarter: 2025Q1

REPORT INFORMATION
  Report Type: Spontaneous
  Country: JP (occurrence: JP)
  Receive Date: 20230918
  Receipt Date: 20250129
  Transmission Date: 20250409
  Serious: Yes (Hospitalization)
  Sender: ROCHE
  Company Number: JP-ROCHE-3421840

PATIENT
  Age: 59 Year
  Sex: Female

DRUGS (9)
  1. OBINUTUZUMAB [Suspect]
     Active Substance: OBINUTUZUMAB
     Indication: Follicular lymphoma
     Route: 040
  2. BENDAMUSTINE [Suspect]
     Active Substance: BENDAMUSTINE
     Indication: Follicular lymphoma
     Route: 065
  3. LEVOFLOXACIN [Concomitant]
     Active Substance: LEVOFLOXACIN
  4. ACYCLOVIR [Concomitant]
     Active Substance: ACYCLOVIR
  5. ATOVAQUONE [Concomitant]
     Active Substance: ATOVAQUONE
  6. CILGAVIMAB\TIXAGEVIMAB [Concomitant]
     Active Substance: CILGAVIMAB\TIXAGEVIMAB
     Route: 030
     Dates: start: 202301
  7. TOZINAMERAN [Concomitant]
     Active Substance: TOZINAMERAN
  8. MOLNUPIRAVIR [Concomitant]
     Active Substance: MOLNUPIRAVIR
     Indication: Neutropenia
  9. MOLNUPIRAVIR [Concomitant]
     Active Substance: MOLNUPIRAVIR
     Indication: Lymphopenia

REACTIONS (1)
  - Post-acute COVID-19 syndrome [Recovered/Resolved]

NARRATIVE: CASE EVENT DATE: 20230401
